FAERS Safety Report 8851771 (Version 1)
Quarter: 2012Q4

REPORT INFORMATION
  Report Type: 
  Country: JP (occurrence: JP)
  Receive Date: 20121022
  Receipt Date: 20121022
  Transmission Date: 20130627
  Serious: Yes (Hospitalization)
  Sender: FDA-Public Use
  Company Number: JP-AMGEN-JPNSP2012066286

PATIENT
  Age: 68 Year
  Sex: Female

DRUGS (9)
  1. ENBREL [Suspect]
     Indication: RHEUMATOID ARTHRITIS
     Dosage: 25 mg, 2x/week
     Route: 058
     Dates: start: 200804, end: 20120716
  2. NU LOTAN [Concomitant]
     Indication: HYPERTENSION
     Dosage: 25 mg, 1x/day
     Route: 048
     Dates: start: 20080119
  3. GASTER [Concomitant]
     Indication: GASTRITIS
     Dosage: 20 mg, daily
     Route: 048
     Dates: start: 20060713
  4. MAG-LAX [Concomitant]
     Indication: CONSTIPATION
     Dosage: 990 mg, daily
     Route: 048
     Dates: start: 20110808
  5. ONE-ALPHA [Concomitant]
     Indication: OSTEOPOROSIS
     Dosage: 0.5 ug, daily
     Route: 048
     Dates: start: 19950218
  6. CALCIUM L-ASPARTATE [Concomitant]
     Indication: OSTEOPOROSIS
     Dosage: 200 mg, 1x/day
     Route: 048
     Dates: start: 19950218
  7. FEBURIC [Concomitant]
     Indication: HYPERURICAEMIA
     Dosage: 20 mg, daily
     Route: 048
     Dates: start: 20110704
  8. ELCATONIN [Concomitant]
     Indication: OSTEOPOROSIS
     Dosage: 1 ml, weekly
     Route: 030
     Dates: start: 19950218
  9. FARNEZONE [Concomitant]
     Indication: RHEUMATOID ARTHRITIS
     Dosage: UNK
     Route: 062
     Dates: start: 200804

REACTIONS (2)
  - Gingival cancer [Recovering/Resolving]
  - Squamous cell carcinoma [Recovering/Resolving]
